FAERS Safety Report 11719397 (Version 1)
Quarter: 2015Q4

REPORT INFORMATION
  Report Type: Spontaneous
  Country: US (occurrence: US)
  Receive Date: 20151110
  Receipt Date: 20151110
  Transmission Date: 20160304
  Serious: Yes (Other)
  Sender: FDA-Public Use
  Company Number: US-MYLANLABS-2015M1037262

PATIENT

DRUGS (2)
  1. FENTANYL TRANSDERMAL SYSTEM [Suspect]
     Active Substance: FENTANYL
     Dosage: 75 ?G/HR, Q72H
     Route: 062
     Dates: start: 20151014
  2. FENTANYL TRANSDERMAL SYSTEM [Suspect]
     Active Substance: FENTANYL
     Indication: CANCER PAIN
     Dosage: 75 ?G/HR, Q72H
     Route: 062
     Dates: start: 20151014

REACTIONS (3)
  - Drug effect decreased [Not Recovered/Not Resolved]
  - Device colour issue [None]
  - Product adhesion issue [None]

NARRATIVE: CASE EVENT DATE: 201510
